FAERS Safety Report 12249887 (Version 1)
Quarter: 2016Q2

REPORT INFORMATION
  Report Type: Spontaneous
  Country: PL (occurrence: PL)
  Receive Date: 20160408
  Receipt Date: 20160408
  Transmission Date: 20160815
  Serious: Yes (Other)
  Sender: FDA-Public Use
  Company Number: PHHY2016PL044588

PATIENT
  Age: 11 Year
  Sex: Female

DRUGS (11)
  1. SOMATROPIN [Suspect]
     Active Substance: SOMATROPIN
     Dosage: 0.33 MG/KG, B.W./D
     Route: 065
  2. RAMIPRIL. [Concomitant]
     Active Substance: RAMIPRIL
     Indication: HYPERTENSION
     Route: 065
  3. SOMATROPIN [Suspect]
     Active Substance: SOMATROPIN
     Dosage: 0.04 MG/KG, QD
     Route: 065
  4. ESTRADIOL. [Concomitant]
     Active Substance: ESTRADIOL
     Dosage: 1 MG, QD
     Route: 065
  5. DYDROGESTERONE [Concomitant]
     Active Substance: DYDROGESTERONE
     Indication: PRODUCT USED FOR UNKNOWN INDICATION
     Dosage: 5 MG, FOR 14 DAYS
     Route: 065
  6. NOVORAPID [Concomitant]
     Active Substance: INSULIN ASPART
     Indication: PRODUCT USED FOR UNKNOWN INDICATION
     Route: 065
  7. SOMATROPIN [Suspect]
     Active Substance: SOMATROPIN
     Dosage: 0.04 MG/KG, QD
     Route: 065
  8. ESTRADIOL. [Concomitant]
     Active Substance: ESTRADIOL
     Indication: PRODUCT USED FOR UNKNOWN INDICATION
     Dosage: 0.125 MG, QD
     Route: 065
  9. MIXTARD HUMAN 70/30 [Concomitant]
     Active Substance: INSULIN HUMAN
     Indication: DIABETES MELLITUS
     Route: 065
  10. SOMATROPIN [Suspect]
     Active Substance: SOMATROPIN
     Indication: TURNER^S SYNDROME
     Dosage: 0.045 MG/KG, QD
     Route: 065
  11. SOMATROPIN [Suspect]
     Active Substance: SOMATROPIN
     Dosage: 0.05 MG/KG, QD
     Route: 065

REACTIONS (4)
  - Body mass index increased [Unknown]
  - Drug ineffective [Unknown]
  - Ketonuria [Recovered/Resolved]
  - Hyperglycaemia [Recovered/Resolved]
